FAERS Safety Report 18170947 (Version 1)
Quarter: 2020Q3

REPORT INFORMATION
  Report Type: Spontaneous
  Country: CN (occurrence: CN)
  Receive Date: 20200819
  Receipt Date: 20200819
  Transmission Date: 20201103
  Serious: Yes (Other)
  Sender: FDA-Public Use
  Company Number: CN-ROCHE-2661756

PATIENT
  Age: 78 Year
  Sex: Male

DRUGS (2)
  1. HERCEPTIN [Suspect]
     Active Substance: TRASTUZUMAB
     Indication: ADENOCARCINOMA GASTRIC
     Route: 065
     Dates: start: 20190124
  2. HERCEPTIN [Suspect]
     Active Substance: TRASTUZUMAB
     Route: 065
     Dates: start: 20190215

REACTIONS (4)
  - Infusion related reaction [Recovering/Resolving]
  - Platelet count decreased [Unknown]
  - Chills [Recovering/Resolving]
  - Myelosuppression [Recovering/Resolving]
